FAERS Safety Report 4969284-5 (Version None)
Quarter: 2006Q2

REPORT INFORMATION
  Report Type: 
  Country: None (occurrence: None)
  Receive Date: 20060411
  Receipt Date: 20060330
  Transmission Date: 20061013
  Serious: Yes (Death)
  Sender: FDA-Public Use
  Company Number: NL-ROCHE-442448

PATIENT
  Age: 58 Year
  Sex: Male

DRUGS (4)
  1. CAPECITABINE [Suspect]
     Route: 048
     Dates: start: 20060309
  2. AVASTIN [Suspect]
     Route: 042
     Dates: start: 20060309
  3. OXALIPLATIN [Suspect]
     Route: 042
     Dates: start: 20060309
  4. ERBITUX [Suspect]
     Route: 042
     Dates: start: 20060309

REACTIONS (1)
  - CARDIAC FAILURE [None]
